FAERS Safety Report 5808732-5 (Version None)
Quarter: 2008Q3

REPORT INFORMATION
  Report Type: 
  Country: None (occurrence: None)
  Receive Date: 20080714
  Receipt Date: 20080714
  Transmission Date: 20090109
  Serious: Yes (Death, Hospitalization)
  Sender: FDA-Public Use
  Company Number: None

PATIENT
  Age: 76 Year
  Sex: Male
  Weight: 79.3795 kg

DRUGS (2)
  1. HEPARIN [Suspect]
     Indication: DIALYSIS
     Dates: start: 20050601, end: 20080124
  2. HEPARIN [Suspect]
     Indication: SURGERY
     Dates: start: 20050601, end: 20080124

REACTIONS (7)
  - BLOOD PRESSURE DECREASED [None]
  - CARDIAC ARREST [None]
  - DRUG HYPERSENSITIVITY [None]
  - MULTI-ORGAN FAILURE [None]
  - POOR QUALITY DRUG ADMINISTERED [None]
  - SEPTIC SHOCK [None]
  - THERAPEUTIC PRODUCT CONTAMINATION [None]
